FAERS Safety Report 5062804-4 (Version None)
Quarter: 2006Q3

REPORT INFORMATION
  Report Type: 
  Country: None (occurrence: None)
  Receive Date: 20060725
  Receipt Date: 20060725
  Transmission Date: 20061208
  Serious: No
  Sender: FDA-Public Use
  Company Number: None

PATIENT
  Age: 52 Year
  Sex: Male
  Weight: 90.2658 kg

DRUGS (2)
  1. REMICADE [Suspect]
     Indication: PSORIATIC ARTHROPATHY
     Dosage: 400MG 2 WKS IV DRIP
     Route: 041
     Dates: start: 20040607, end: 20040622
  2. HUMIRA [Suspect]
     Dosage: 40MG 2WKS SQ
     Route: 058
     Dates: start: 20040701, end: 20060714

REACTIONS (4)
  - LEUKOCYTOSIS [None]
  - LYMPHADENOPATHY [None]
  - MYALGIA [None]
  - VISION BLURRED [None]
